FAERS Safety Report 9485153 (Version 1)
Quarter: 2013Q3

REPORT INFORMATION
  Report Type: Spontaneous
  Country: US (occurrence: US)
  Receive Date: 20130828
  Receipt Date: 20130828
  Transmission Date: 20140515
  Serious: No
  Sender: FDA-Public Use
  Company Number: US-ABBOTT-13P-163-1113668-00

PATIENT
  Age: 72 Year
  Sex: Male

DRUGS (1)
  1. ANDROGEL [Suspect]
     Indication: ASTHENIA
     Dates: start: 20130617

REACTIONS (1)
  - Asthenia [Not Recovered/Not Resolved]
